FAERS Safety Report 11702734 (Version 1)
Quarter: 2015Q4

REPORT INFORMATION
  Report Type: Spontaneous
  Country: US (occurrence: US)
  Receive Date: 20151105
  Receipt Date: 20151105
  Transmission Date: 20160304
  Serious: No
  Sender: FDA-Public Use
  Company Number: US-PFIZER INC-2007060008

PATIENT
  Age: 84 Year
  Sex: Male
  Weight: 84 kg

DRUGS (14)
  1. PILOCARPINE. [Concomitant]
     Active Substance: PILOCARPINE
  2. OCUVITE [Concomitant]
     Active Substance: VITAMINS
  3. CENTRUM SILVER [Concomitant]
     Active Substance: MINERALS\VITAMINS
  4. ALPHAGAN P [Concomitant]
     Active Substance: BRIMONIDINE TARTRATE
  5. AVANDIA [Concomitant]
     Active Substance: ROSIGLITAZONE MALEATE
  6. LECITHIN [Concomitant]
     Active Substance: LECITHIN
  7. AMARYL [Concomitant]
     Active Substance: GLIMEPIRIDE
  8. VIAGRA [Suspect]
     Active Substance: SILDENAFIL CITRATE
     Indication: ERECTILE DYSFUNCTION
     Route: 048
     Dates: start: 200707
  9. TRAVATAN [Concomitant]
     Active Substance: TRAVOPROST
  10. IBUPROFEN. [Concomitant]
     Active Substance: IBUPROFEN
  11. ADALAT [Concomitant]
     Active Substance: NIFEDIPINE
  12. TIMOPTIC [Concomitant]
     Active Substance: TIMOLOL MALEATE
  13. FISH OIL [Concomitant]
     Active Substance: FISH OIL
  14. NIACIN. [Concomitant]
     Active Substance: NIACIN

REACTIONS (1)
  - Drug ineffective [Not Recovered/Not Resolved]

NARRATIVE: CASE EVENT DATE: 200707
